FAERS Safety Report 7377257-0 (Version None)
Quarter: 2011Q1

REPORT INFORMATION
  Report Type: 
  Country: None (occurrence: None)
  Receive Date: 20110315
  Receipt Date: 20110302
  Transmission Date: 20110831
  Serious: Yes (Other)
  Sender: FDA-Public Use
  Company Number: 11-000241

PATIENT
  Age: 44 Year
  Sex: Female

DRUGS (1)
  1. LOESTRIN 24 FE [Suspect]
     Indication: MENSTRUATION IRREGULAR
     Dosage: 20/1000 UG, QD, ORAL
     Route: 048
     Dates: start: 20100101, end: 20101201

REACTIONS (2)
  - SJOGREN'S SYNDROME [None]
  - HERPES SIMPLEX [None]
